FAERS Safety Report 6157663-2 (Version None)
Quarter: 2009Q2

REPORT INFORMATION
  Report Type: 
  Country: None (occurrence: None)
  Receive Date: 20090414
  Receipt Date: 20090414
  Transmission Date: 20091009
  Serious: Yes (Hospitalization)
  Sender: FDA-Public Use
  Company Number: None

PATIENT
  Age: 55 Year
  Sex: Female
  Weight: 48.0813 kg

DRUGS (2)
  1. OXALIPLATIN [Suspect]
     Indication: PANCREATIC CARCINOMA
     Dosage: 85MG/M2 ONCE Q 15 DAYS IV
     Route: 042
     Dates: start: 20090213, end: 20090213
  2. ORAL CAPECITABINE+ORAL 3375MG + 200MG [Suspect]
     Indication: PANCREATIC CARCINOMA
     Dosage: 3375MG + 200MG 6 DOSE Q 8HR+200BID PO
     Route: 048
     Dates: start: 20090213, end: 20090407

REACTIONS (5)
  - BACK PAIN [None]
  - BODY TEMPERATURE INCREASED [None]
  - CHILLS [None]
  - FATIGUE [None]
  - PULMONARY EMBOLISM [None]
